FAERS Safety Report 11690888 (Version 1)
Quarter: 2015Q4

REPORT INFORMATION
  Report Type: Spontaneous
  Country: SE (occurrence: SE)
  Receive Date: 20151102
  Receipt Date: 20151102
  Transmission Date: 20160304
  Serious: Yes (Other)
  Sender: FDA-Public Use
  Company Number: SE-PFIZER INC-2015365551

PATIENT
  Age: 52 Year
  Sex: Female

DRUGS (1)
  1. LYRICA [Suspect]
     Active Substance: PREGABALIN
     Indication: INTERVERTEBRAL DISC PROTRUSION
     Dosage: 150 MG, 2X/DAY
     Route: 048
     Dates: start: 20130501, end: 20150702

REACTIONS (11)
  - Derealisation [Recovered/Resolved]
  - Mania [Recovered/Resolved]
  - Eczema [Recovered/Resolved]
  - Pain [Recovered/Resolved]
  - Tinnitus [Recovered/Resolved]
  - Depression [Unknown]
  - Loss of libido [Recovered/Resolved]
  - Confusional state [Recovered/Resolved]
  - Nasal congestion [Recovered/Resolved]
  - Sleep disorder [Recovered/Resolved]
  - Memory impairment [Recovered/Resolved]

NARRATIVE: CASE EVENT DATE: 20130601
